FAERS Safety Report 7673595-2 (Version None)
Quarter: 2011Q3

REPORT INFORMATION
  Report Type: 
  Country: None (occurrence: None)
  Receive Date: 20110804
  Receipt Date: 20110720
  Transmission Date: 20111222
  Serious: Yes (Other)
  Sender: FDA-Public Use
  Company Number: DSJ-2011-03589

PATIENT
  Age: 59 Year
  Sex: Female

DRUGS (3)
  1. METFORMIN HCL [Concomitant]
  2. BENICAR HCT [Suspect]
     Indication: HYPERTENSION
     Dosage: 40/25 MG (1 IN 1 D), PER ORAL
     Route: 048
     Dates: start: 20100201
  3. INSULIN (INSULIN) (INSULIN) [Concomitant]

REACTIONS (2)
  - EYE LASER SURGERY [None]
  - VISUAL IMPAIRMENT [None]
